FAERS Safety Report 7447873-6 (Version None)
Quarter: 2011Q2

REPORT INFORMATION
  Report Type: 
  Country: None (occurrence: None)
  Receive Date: 20110429
  Receipt Date: 20100323
  Transmission Date: 20111010
  Serious: No
  Sender: FDA-Public Use
  Company Number: US-ASTRAZENECA-2006UW01951

PATIENT
  Sex: Female
  Weight: 113.4 kg

DRUGS (2)
  1. ACETAMINOPHEN [Concomitant]
  2. NEXIUM [Suspect]
     Indication: BARRETT'S OESOPHAGUS
     Route: 050
     Dates: start: 20050101

REACTIONS (3)
  - PAIN [None]
  - ARTHRITIS [None]
  - GAIT DISTURBANCE [None]
